FAERS Safety Report 22341040 (Version 3)
Quarter: 2024Q2

REPORT INFORMATION
  Report Type: Report from Study
  Country: US (occurrence: US)
  Receive Date: 20230518
  Receipt Date: 20240401
  Transmission Date: 20240716
  Serious: Yes (Other)
  Sender: FDA-Public Use
  Company Number: US-JAZZ-2023-US-000983

PATIENT
  Sex: Male

DRUGS (4)
  1. XYREM [Suspect]
     Active Substance: SODIUM OXYBATE
     Indication: Narcolepsy
     Dosage: UNK
  2. XYREM [Suspect]
     Active Substance: SODIUM OXYBATE
     Indication: Cataplexy
     Dosage: 4.5 GRAM, BID
  3. XYREM [Suspect]
     Active Substance: SODIUM OXYBATE
     Dosage: UNK
  4. ACETAMINOPHEN\CODEINE PHOSPHATE [Concomitant]
     Active Substance: ACETAMINOPHEN\CODEINE PHOSPHATE
     Indication: Product used for unknown indication
     Dosage: UNK
     Dates: start: 20230318

REACTIONS (13)
  - Hernia [Unknown]
  - Post procedural infection [Unknown]
  - Hypertension [Recovering/Resolving]
  - Eye operation [Unknown]
  - Sinus disorder [Unknown]
  - Joint injury [Unknown]
  - Arthritis [Unknown]
  - Fall [Unknown]
  - Urinary incontinence [Unknown]
  - Herpes zoster [Unknown]
  - Spondylitis [Unknown]
  - Product administration interrupted [Unknown]
  - Therapeutic product effect decreased [Unknown]
